FAERS Safety Report 24864045 (Version 1)
Quarter: 2025Q1

REPORT INFORMATION
  Report Type: Spontaneous
  Country: US (occurrence: US)
  Receive Date: 20250120
  Receipt Date: 20250120
  Transmission Date: 20250409
  Serious: Yes (Other)
  Sender: SLATE RUN
  Company Number: US-SLATERUN-2025SRLIT00007

PATIENT
  Age: 50 Year
  Sex: Male

DRUGS (1)
  1. ESOMEPRAZOLE SODIUM [Suspect]
     Active Substance: ESOMEPRAZOLE SODIUM
     Indication: Product used for unknown indication
     Dosage: DAILY FOR 20 YEARS
     Route: 065

REACTIONS (1)
  - Gastrointestinal neuroendocrine tumour [Recovering/Resolving]
